FAERS Safety Report 13842540 (Version 5)
Quarter: 2017Q3

REPORT INFORMATION
  Report Type: Spontaneous
  Country: JP (occurrence: JP)
  Receive Date: 20170808
  Receipt Date: 20170911
  Transmission Date: 20171127
  Serious: Yes (Life-Threatening, Hospitalization, Other)
  Sender: FDA-Public Use
  Company Number: JP-009507513-1707JPN002462J

PATIENT
  Age: 62 Year
  Sex: Female
  Weight: 43 kg

DRUGS (1)
  1. KEYTRUDA [Suspect]
     Active Substance: PEMBROLIZUMAB
     Indication: LUNG ADENOCARCINOMA
     Dosage: 200 MG, Q3W
     Route: 041
     Dates: start: 20170531, end: 20170904

REACTIONS (5)
  - Hepatic function abnormal [Not Recovered/Not Resolved]
  - Interstitial lung disease [Recovered/Resolved]
  - Hypothyroidism [Not Recovered/Not Resolved]
  - Pneumatosis intestinalis [Unknown]
  - Enteritis [Recovering/Resolving]

NARRATIVE: CASE EVENT DATE: 20170608
